FAERS Safety Report 23289722 (Version 3)
Quarter: 2024Q1

REPORT INFORMATION
  Report Type: Report from Study
  Country: CN (occurrence: CN)
  Receive Date: 20231212
  Receipt Date: 20240117
  Transmission Date: 20240410
  Serious: No
  Sender: FDA-Public Use
  Company Number: CN-PFIZER INC-PV202300200798

PATIENT
  Age: 73 Year
  Sex: Male
  Weight: 65 kg

DRUGS (12)
  1. NIRMATRELVIR\RITONAVIR [Suspect]
     Active Substance: NIRMATRELVIR\RITONAVIR
     Indication: COVID-19 treatment
     Dosage: [NIRMATRELVIR 300 MG]/[RITONAVIR 100 MG], 2X/DAY
     Route: 048
     Dates: start: 20220506, end: 20220511
  2. NIRMATRELVIR\RITONAVIR [Suspect]
     Active Substance: NIRMATRELVIR\RITONAVIR
     Dosage: [NIRMATRELVIR 300 MG]/[RITONAVIR 100 MG], 2X/DAY
     Route: 048
     Dates: start: 20220514
  3. THYMALFASIN [Concomitant]
     Active Substance: THYMALFASIN
     Indication: Supplementation therapy
     Dosage: UNK
     Route: 058
     Dates: start: 20220506, end: 20220518
  4. OXYGEN [Concomitant]
     Active Substance: OXYGEN
     Indication: Oxygen therapy
     Dosage: UNK
     Route: 055
     Dates: start: 20220507, end: 20220518
  5. HEPARIN CALCIUM [Concomitant]
     Active Substance: HEPARIN CALCIUM
     Indication: Anticoagulant therapy
     Dosage: UNK
     Route: 058
     Dates: start: 20220507, end: 20220518
  6. LOPROFEN [Concomitant]
     Indication: Pain
     Dosage: EXTENDED-RELEASE TABLETS
     Route: 048
     Dates: start: 20220506
  7. YUNNAN BAIYAO [Concomitant]
     Indication: Swelling
     Dosage: AEROSOL
     Route: 061
     Dates: start: 20220506
  8. YUNNAN BAIYAO [Concomitant]
     Indication: Pain
  9. HERBALS\MENTHOL [Concomitant]
     Active Substance: HERBALS\MENTHOL
     Indication: Pyrexia
     Dosage: UNK
     Route: 048
     Dates: start: 20220506
  10. HERBALS\MENTHOL [Concomitant]
     Active Substance: HERBALS\MENTHOL
     Indication: Antiviral treatment
  11. COMPOUND LIQUORICE ORAL SOLUTION [Concomitant]
     Indication: Cough
     Dosage: UNK
     Route: 048
     Dates: start: 20220507
  12. COMPOUND LIQUORICE ORAL SOLUTION [Concomitant]
     Indication: Productive cough

REACTIONS (1)
  - Overdose [Unknown]
